FAERS Safety Report 16691778 (Version 3)
Quarter: 2019Q4

REPORT INFORMATION
  Report Type: Report from Study
  Country: US (occurrence: US)
  Receive Date: 20190812
  Receipt Date: 20191004
  Transmission Date: 20200122
  Serious: Yes (Hospitalization, Disabling, Other)
  Sender: FDA-Public Use
  Company Number: US-SA-2017SA238656

PATIENT
  Age: 56 Year
  Sex: Female

DRUGS (3)
  1. ALEMTUZUMAB [Suspect]
     Active Substance: ALEMTUZUMAB
     Dosage: 12 MG,QD
     Route: 041
     Dates: start: 20171106, end: 20171108
  2. ALEMTUZUMAB [Suspect]
     Active Substance: ALEMTUZUMAB
     Indication: MULTIPLE SCLEROSIS
     Dosage: 12 MG,QD
     Route: 041
     Dates: start: 20160920, end: 20160922
  3. ALEMTUZUMAB [Suspect]
     Active Substance: ALEMTUZUMAB
     Dosage: 12 MG,QD
     Route: 041
     Dates: start: 20160927, end: 20160928

REACTIONS (19)
  - Housebound [Not Recovered/Not Resolved]
  - Gait disturbance [Not Recovered/Not Resolved]
  - Malaise [Unknown]
  - White blood cell count decreased [Unknown]
  - Hypothyroidism [Not Recovered/Not Resolved]
  - Acne [Not Recovered/Not Resolved]
  - Blood count abnormal [Unknown]
  - Blood thyroid stimulating hormone increased [Unknown]
  - Skin discolouration [Not Recovered/Not Resolved]
  - Red blood cell count decreased [Unknown]
  - Transfusion [Unknown]
  - Hypotension [Unknown]
  - Muscular weakness [Not Recovered/Not Resolved]
  - Bone marrow disorder [Unknown]
  - Autoimmune disorder [Unknown]
  - Cough [Not Recovered/Not Resolved]
  - Inappropriate schedule of product administration [Unknown]
  - Progressive multiple sclerosis [Not Recovered/Not Resolved]
  - Dysuria [Recovered/Resolved]

NARRATIVE: CASE EVENT DATE: 20160928
